FAERS Safety Report 19025066 (Version 1)
Quarter: 2021Q1

REPORT INFORMATION
  Report Type: Spontaneous
  Country: US (occurrence: US)
  Receive Date: 20210316
  Receipt Date: 20210316
  Transmission Date: 20210420
  Serious: Yes (Life-Threatening)
  Sender: FDA-Public Use
  Company Number: None

PATIENT
  Age: 88 Year
  Sex: Male
  Weight: 81 kg

DRUGS (1)
  1. DESMOPRESSIN (DESMOPRESSIN ACETATE 0.1MG/ML SOLN, NASAL SPRAY) [Suspect]
     Active Substance: DESMOPRESSIN ACETATE
     Indication: HYPONATRAEMIA
     Route: 045
     Dates: start: 20190410, end: 20190912

REACTIONS (4)
  - Gait disturbance [None]
  - Confusional state [None]
  - Hyponatraemia [None]
  - Fatigue [None]

NARRATIVE: CASE EVENT DATE: 20191017
